FAERS Safety Report 9685528 (Version 1)
Quarter: 2013Q4

REPORT INFORMATION
  Report Type: Spontaneous
  Country: GB (occurrence: GB)
  Receive Date: 20131113
  Receipt Date: 20131113
  Transmission Date: 20140711
  Serious: Yes (Hospitalization)
  Sender: FDA-Public Use
  Company Number: GB-BAYER-2013-137094

PATIENT
  Age: 26 Year
  Sex: Female

DRUGS (8)
  1. ACETYLSALICYLIC ACID({=100 MG) [Suspect]
     Indication: ANTIPHOSPHOLIPID SYNDROME
     Dosage: DAILY DOSE 75 MG
  2. ACETYLSALICYLIC ACID({=100 MG) [Suspect]
     Indication: THROMBOSIS PROPHYLAXIS
     Dosage: 175 MG, QD
  3. ENOXAPARIN [Concomitant]
     Indication: ANTIPHOSPHOLIPID SYNDROME
     Dosage: 1 MG/KG, BID
  4. ENOXAPARIN [Concomitant]
     Indication: THROMBOSIS PROPHYLAXIS
  5. PROSTAGLANDINE E2 KAKEN [Concomitant]
     Indication: LABOUR INDUCTION
     Route: 067
  6. TACROLIMUS [Concomitant]
     Indication: PROPHYLAXIS AGAINST TRANSPLANT REJECTION
     Dosage: 3 MG, BID
  7. WARFARIN [Concomitant]
     Indication: THROMBOSIS PROPHYLAXIS
  8. WARFARIN [Concomitant]
     Indication: ANTIPHOSPHOLIPID SYNDROME

REACTIONS (8)
  - Maternal exposure during pregnancy [None]
  - Budd-Chiari syndrome [Recovered/Resolved with Sequelae]
  - Portal hypertension [None]
  - Staphylococcal sepsis [None]
  - Hepatic failure [Not Recovered/Not Resolved]
  - Hepatic artery thrombosis [Recovered/Resolved with Sequelae]
  - Vasculitis [None]
  - Premature labour [None]
